FAERS Safety Report 5877026-4 (Version None)
Quarter: 2008Q3

REPORT INFORMATION
  Report Type: 
  Country: None (occurrence: None)
  Receive Date: 20080910
  Receipt Date: 20080902
  Transmission Date: 20090109
  Serious: Yes (Other)
  Sender: FDA-Public Use
  Company Number: PHEH2008US07806

PATIENT
  Age: 82 Year
  Sex: Female
  Weight: 55.6 kg

DRUGS (1)
  1. RECLAST [Suspect]
     Dosage: 5 MG, UNK
     Route: 042
     Dates: start: 20080826

REACTIONS (3)
  - CHONDROCALCINOSIS PYROPHOSPHATE [None]
  - PAIN [None]
  - SWELLING [None]
